FAERS Safety Report 14559256 (Version 9)
Quarter: 2018Q2

REPORT INFORMATION
  Report Type: Spontaneous
  Country: US (occurrence: US)
  Receive Date: 20180221
  Receipt Date: 20180614
  Transmission Date: 20180711
  Serious: No
  Sender: FDA-Public Use
  Company Number: US-ACTELION-A-NJ2018-167924

PATIENT
  Age: 65 Year
  Sex: Female
  Weight: 60.32 kg

DRUGS (6)
  1. VELETRI [Suspect]
     Active Substance: EPOPROSTENOL
     Indication: PULMONARY ARTERIAL HYPERTENSION
     Dosage: 4 NG/KG, PER MIN
     Route: 042
  2. OPSUMIT [Suspect]
     Active Substance: MACITENTAN
     Indication: PULMONARY ARTERIAL HYPERTENSION
     Dosage: 10 MG, QD
     Route: 048
     Dates: start: 20170630
  3. VELETRI [Suspect]
     Active Substance: EPOPROSTENOL
     Dosage: 8 NG/KG, PER MIN
     Route: 042
  4. VELETRI [Suspect]
     Active Substance: EPOPROSTENOL
     Dosage: 7 NG/KG, PER MIN
     Route: 042
  5. SILDENAFIL. [Concomitant]
     Active Substance: SILDENAFIL
     Indication: PULMONARY ARTERIAL HYPERTENSION
  6. VELETRI [Suspect]
     Active Substance: EPOPROSTENOL
     Dosage: 10 NG/KG, PER MIN
     Route: 042

REACTIONS (14)
  - Diarrhoea [Unknown]
  - Kidney infection [Unknown]
  - Pain in jaw [Unknown]
  - Rash erythematous [Unknown]
  - Nausea [Unknown]
  - Blister [Unknown]
  - Cystitis [Unknown]
  - Catheter site pruritus [Unknown]
  - Rash [Unknown]
  - Back pain [Unknown]
  - Pain [Recovered/Resolved]
  - Vomiting [Unknown]
  - Pulmonary arterial hypertension [Unknown]
  - Headache [Unknown]

NARRATIVE: CASE EVENT DATE: 20180202
